FAERS Safety Report 8062476-0 (Version None)
Quarter: 2012Q1

REPORT INFORMATION
  Report Type: 
  Country: None (occurrence: None)
  Receive Date: 20120118
  Receipt Date: 20120107
  Transmission Date: 20120608
  Serious: Yes (Hospitalization)
  Sender: FDA-Public Use
  Company Number: 2012AP000041

PATIENT
  Age: 13 Year
  Sex: Female

DRUGS (2)
  1. BUPROPION HYDROCHLORIDE [Suspect]
     Indication: PRODUCT USED FOR UNKNOWN INDICATION
  2. BACLOFEN [Suspect]
     Indication: PRODUCT USED FOR UNKNOWN INDICATION

REACTIONS (8)
  - BRADYCARDIA [None]
  - GRAND MAL CONVULSION [None]
  - DECEREBRATION [None]
  - HYPOTHERMIA [None]
  - RESPIRATORY ARREST [None]
  - SUICIDAL IDEATION [None]
  - INTENTIONAL OVERDOSE [None]
  - COMA [None]
